FAERS Safety Report 4294194-9 (Version None)
Quarter: 2004Q1

REPORT INFORMATION
  Report Type: 
  Country: None (occurrence: None)
  Receive Date: 20040211
  Receipt Date: 20040108
  Transmission Date: 20041129
  Serious: Yes (Hospitalization)
  Sender: FDA-Public Use
  Company Number: 001-0981-992915

PATIENT
  Age: 75 Year
  Sex: Male
  Weight: 99.5 kg

DRUGS (9)
  1. ATORVASTATIN CALCIUM [Suspect]
     Indication: CORONARY ARTERY DISEASE
     Dosage: 10 MG (DAILY), ORAL; SEE IMAGE
     Route: 048
     Dates: start: 19980908
  2. ATORVASTATIN CALCIUM [Suspect]
     Indication: CORONARY ARTERY DISEASE
     Dosage: 10 MG (DAILY), ORAL; SEE IMAGE
     Route: 048
     Dates: start: 19981103
  3. LEVOTHYROXINE SODIUM (LEVOTHYOXINE SODIUM) [Concomitant]
  4. ISOSORBIDE MONONITRATE [Concomitant]
  5. METOPROLOL SUCCINATE [Concomitant]
  6. ACETYLSALICYLIC ACID SRT [Concomitant]
  7. TOCOPHEROL CONCENTRATE CAP [Concomitant]
  8. ANTIOXIDANT VITAMINS [Concomitant]
  9. MULTIVITAMIN [Concomitant]

REACTIONS (2)
  - COLON CANCER [None]
  - COLONIC POLYP [None]
